FAERS Safety Report 23794616 (Version 3)
Quarter: 2024Q4

REPORT INFORMATION
  Report Type: Spontaneous
  Country: CA (occurrence: CA)
  Receive Date: 20240429
  Receipt Date: 20241218
  Transmission Date: 20250114
  Serious: Yes (Hospitalization)
  Sender: Unknown Manufacturer
  Company Number: CA-MIRUM PHARMACEUTICALS INTERNATIONAL B.V.-CA-MIR-24-00227

PATIENT

DRUGS (3)
  1. LIVMARLI [Suspect]
     Active Substance: MARALIXIBAT CHLORIDE
     Indication: Cholestasis of pregnancy
     Dosage: 1.75 MILLILITER, QD
     Route: 048
     Dates: start: 20240126, end: 20240405
  2. LIVMARLI [Suspect]
     Active Substance: MARALIXIBAT CHLORIDE
     Indication: Progressive familial intrahepatic cholestasis
  3. URSODIOL [Concomitant]
     Active Substance: URSODIOL
     Indication: Product used for unknown indication
     Dosage: UNK
     Route: 065

REACTIONS (4)
  - Premature labour [Recovered/Resolved]
  - Bile acids increased [Recovered/Resolved]
  - Maternal exposure during pregnancy [Unknown]
  - Off label use [Unknown]

NARRATIVE: CASE EVENT DATE: 20240126
